FAERS Safety Report 9914105 (Version 1)
Quarter: 2014Q1

REPORT INFORMATION
  Report Type: Spontaneous
  Country: US (occurrence: None)
  Receive Date: 20140219
  Receipt Date: 20140219
  Transmission Date: 20141002
  Serious: Yes (Other)
  Sender: FDA-Public Use
  Company Number: None

PATIENT
  Age: 49 Year
  Sex: Female
  Weight: 53.07 kg

DRUGS (1)
  1. AMBIEN CR [Suspect]
     Indication: INSOMNIA
     Dosage: 1 PILL   ONCE DAILY  TAKEN BY MOUTH
     Route: 048

REACTIONS (6)
  - Somnambulism [None]
  - Malaise [None]
  - Contusion [None]
  - Fall [None]
  - Sleep-related eating disorder [None]
  - Laceration [None]
